FAERS Safety Report 4874988-9 (Version None)
Quarter: 2006Q1

REPORT INFORMATION
  Report Type: 
  Country: None (occurrence: None)
  Receive Date: 20060104
  Receipt Date: 20051221
  Transmission Date: 20060701
  Serious: Yes (Other)
  Sender: FDA-Public Use
  Company Number: GB-2005-025198

PATIENT
  Age: 53 Year
  Sex: Female

DRUGS (5)
  1. BETASERON [Suspect]
     Indication: SECONDARY PROGRESSIVE MULTIPLE SCLEROSIS
     Dosage: 8 MIU, 1 DOSE, SUBCUTANEOUS
     Route: 058
     Dates: start: 20051128, end: 20051128
  2. ANTIDEPRESSANTS [Concomitant]
  3. ZOPICLONE [Concomitant]
  4. TOLTERODINE TARTRATE [Concomitant]
  5. BACLOFEN [Concomitant]

REACTIONS (11)
  - APHASIA [None]
  - ASTHENIA [None]
  - CONFUSIONAL STATE [None]
  - ERYTHEMA [None]
  - FALL [None]
  - FEELING HOT [None]
  - INCONTINENCE [None]
  - LOSS OF CONSCIOUSNESS [None]
  - MULTIPLE SCLEROSIS RELAPSE [None]
  - OEDEMA PERIPHERAL [None]
  - PARALYSIS [None]
